FAERS Safety Report 15734250 (Version 1)
Quarter: 2018Q4

REPORT INFORMATION
  Report Type: Spontaneous
  Country: KR (occurrence: KR)
  Receive Date: 20181218
  Receipt Date: 20181218
  Transmission Date: 20190205
  Serious: Yes (Other)
  Sender: FDA-Public Use
  Company Number: KR-CONCORDIA PHARMACEUTICALS INC.-E2B_00011507

PATIENT
  Age: 19 Year
  Sex: Female

DRUGS (4)
  1. PREDNISOLONE. [Suspect]
     Active Substance: PREDNISOLONE
     Dosage: IRREGULARLY FOR 13 YEARS
  2. MESALAZINE [Concomitant]
     Active Substance: MESALAMINE
     Dosage: IRREGULARLY FOR 13 YEARS
  3. MESALAZINE [Concomitant]
     Active Substance: MESALAMINE
     Indication: CROHN^S DISEASE
  4. PREDNISOLONE. [Suspect]
     Active Substance: PREDNISOLONE
     Indication: CROHN^S DISEASE

REACTIONS (2)
  - Cushingoid [Unknown]
  - Generalised oedema [Unknown]
